FAERS Safety Report 4919040-9 (Version None)
Quarter: 2006Q1

REPORT INFORMATION
  Report Type: 
  Country: None (occurrence: None)
  Receive Date: 20060215
  Receipt Date: 20060206
  Transmission Date: 20060701
  Serious: Yes (Death)
  Sender: FDA-Public Use
  Company Number: B0409783A

PATIENT
  Sex: 0

DRUGS (1)
  1. EPIVIR [Suspect]
     Indication: HEPATITIS B

REACTIONS (1)
  - HEPATIC FAILURE [None]
